FAERS Safety Report 7738175-9 (Version None)
Quarter: 2011Q3

REPORT INFORMATION
  Report Type: 
  Country: None (occurrence: None)
  Receive Date: 20110908
  Receipt Date: 20110831
  Transmission Date: 20111222
  Serious: Yes (Hospitalization, Other)
  Sender: FDA-Public Use
  Company Number: US-PFIZER INC-2011202331

PATIENT
  Sex: Male
  Weight: 68.4 kg

DRUGS (2)
  1. LIPITOR [Suspect]
     Indication: CARDIAC OPERATION
     Dosage: 10 MG, 1X/DAY
     Route: 048
     Dates: start: 20080101, end: 20110828
  2. PEPCID [Concomitant]
     Dosage: 20 MG, UNK

REACTIONS (5)
  - PAIN IN EXTREMITY [None]
  - BLOOD GLUCOSE FLUCTUATION [None]
  - PAIN [None]
  - BACK PAIN [None]
  - ARTHROPATHY [None]
